FAERS Safety Report 13313285 (Version 1)
Quarter: 2017Q1

REPORT INFORMATION
  Report Type: Spontaneous
  Country: FR (occurrence: FR)
  Receive Date: 20170309
  Receipt Date: 20170309
  Transmission Date: 20170428
  Serious: Yes (Hospitalization, Other)
  Sender: FDA-Public Use
  Company Number: FR-PFIZER INC-2017095666

PATIENT
  Age: 93 Year
  Sex: Female

DRUGS (8)
  1. LASILIX FAIBLE [Suspect]
     Active Substance: FUROSEMIDE
     Dosage: 20 MG, 1X/DAY
     Route: 048
  2. ELIQUIS [Concomitant]
     Active Substance: APIXABAN
  3. DOLIPRANE [Concomitant]
     Active Substance: ACETAMINOPHEN
  4. IMOVANE [Concomitant]
     Active Substance: ZOPICLONE
  5. PANTOPRAZOLE [Concomitant]
     Active Substance: PANTOPRAZOLE SODIUM
  6. ALDACTONE [Suspect]
     Active Substance: SPIRONOLACTONE
     Dosage: 12.5 MG, ALTERNATE DAY
     Route: 048
     Dates: end: 20161206
  7. BISOPROLOL HEMIFUMARATE [Suspect]
     Active Substance: BISOPROLOL FUMARATE
     Dosage: 2.5 MG, 1X/DAY
     Route: 048
  8. HEMIGOXINE NATIVELLE [Concomitant]
     Active Substance: DIGOXIN

REACTIONS (1)
  - Hypotension [Recovered/Resolved]

NARRATIVE: CASE EVENT DATE: 20161206
